FAERS Safety Report 18082687 (Version 1)
Quarter: 2020Q3

REPORT INFORMATION
  Report Type: Spontaneous
  Country: US (occurrence: US)
  Receive Date: 20200729
  Receipt Date: 20200729
  Transmission Date: 20201103
  Serious: Yes (Other)
  Sender: FDA-Public Use
  Company Number: US-SA-2020SA192783

PATIENT

DRUGS (2)
  1. GOLD BOND EXTRA STRENGTH [Suspect]
     Active Substance: MENTHOL
     Dosage: UNK
     Dates: start: 2012, end: 2019
  2. BABY POWDER [Suspect]
     Active Substance: ZINC OXIDE
     Dosage: UNK
     Dates: start: 1995, end: 2019

REACTIONS (6)
  - Injury [Unknown]
  - Emotional distress [Unknown]
  - Exposure to chemical pollution [Unknown]
  - Pain [Unknown]
  - Mesothelioma [Unknown]
  - Impaired work ability [Unknown]
